FAERS Safety Report 11696072 (Version 1)
Quarter: 2015Q4

REPORT INFORMATION
  Report Type: Spontaneous
  Country: US (occurrence: None)
  Receive Date: 20151103
  Receipt Date: 20151103
  Transmission Date: 20160304
  Serious: No
  Sender: FDA-Public Use
  Company Number: None

PATIENT
  Age: 10 Year
  Sex: Male
  Weight: 31.75 kg

DRUGS (1)
  1. CONCERTA [Suspect]
     Active Substance: METHYLPHENIDATE HYDROCHLORIDE
     Indication: ATTENTION DEFICIT/HYPERACTIVITY DISORDER
     Dosage: 1 PILL, ONCE DAILY, TAKEN BY MOUTH
     Route: 048
     Dates: start: 20151019, end: 20151102

REACTIONS (6)
  - Cognitive disorder [None]
  - Tic [None]
  - Disturbance in attention [None]
  - Drug ineffective [None]
  - Product substitution issue [None]
  - Insomnia [None]

NARRATIVE: CASE EVENT DATE: 20151019
